FAERS Safety Report 10275029 (Version 2)
Quarter: 2014Q3

REPORT INFORMATION
  Report Type: Spontaneous
  Country: PL (occurrence: PL)
  Receive Date: 20140703
  Receipt Date: 20140901
  Transmission Date: 20150326
  Serious: Yes (Other)
  Sender: FDA-Public Use
  Company Number: PL-ROCHE-1428746

PATIENT
  Age: 76 Year
  Sex: Female
  Weight: 58 kg

DRUGS (3)
  1. ENALAPRIL [Concomitant]
     Active Substance: ENALAPRIL
     Indication: HYPERTENSION
     Route: 048
     Dates: start: 20140327
  2. HERCEPTIN [Suspect]
     Active Substance: TRASTUZUMAB
     Indication: BREAST CANCER
     Dosage: FREQUENCY: 3 WEEKS
     Route: 042
     Dates: start: 20140630, end: 20140630
  3. HERCEPTIN [Suspect]
     Active Substance: TRASTUZUMAB
     Dosage: SECOND INFUSION THAT WAS WAS COMPLETED ON THE SAME DAY WITHOUT AND ADVERSE EVENTS
     Route: 042
     Dates: start: 20140721

REACTIONS (2)
  - Chills [Recovered/Resolved]
  - Blood pressure increased [Recovered/Resolved]

NARRATIVE: CASE EVENT DATE: 20140630
